FAERS Safety Report 10262628 (Version 2)
Quarter: 2014Q2

REPORT INFORMATION
  Report Type: Report from Study
  Country: AU (occurrence: AU)
  Receive Date: 20140626
  Receipt Date: 20140626
  Transmission Date: 20141212
  Serious: Yes (Hospitalization)
  Sender: FDA-Public Use
  Company Number: AU-BAYER-2014-081819

PATIENT
  Age: 67 Year
  Sex: Female
  Weight: 53.9 kg

DRUGS (5)
  1. STIVARGA [Suspect]
     Indication: COLORECTAL CANCER METASTATIC
     Dosage: 160 MG, QD
     Route: 048
     Dates: start: 20140521
  2. NEXIUM [Concomitant]
     Indication: REFLUX GASTRITIS
     Dosage: 40 MG QD
     Route: 048
     Dates: start: 2013
  3. XARELTO [Concomitant]
     Indication: ANTICOAGULANT THERAPY
     Dosage: 20 MG QD
     Route: 048
     Dates: start: 2013
  4. PREDNISOLONE [Concomitant]
     Indication: STEROID THERAPY
     Dosage: 12.5 MG QD
     Route: 048
  5. SPIRONOLACTONE [Concomitant]
     Indication: DIURETIC THERAPY
     Dosage: 100 MG QD
     Route: 048
     Dates: start: 2014

REACTIONS (5)
  - Mobility decreased [None]
  - Fatigue [Not Recovered/Not Resolved]
  - Dyspnoea [Not Recovered/Not Resolved]
  - Palmar-plantar erythrodysaesthesia syndrome [Recovering/Resolving]
  - Plantar erythema [Recovering/Resolving]
